FAERS Safety Report 8262074-X (Version None)
Quarter: 2012Q2

REPORT INFORMATION
  Report Type: 
  Country: None (occurrence: None)
  Receive Date: 20120405
  Receipt Date: 20120323
  Transmission Date: 20120825
  Serious: Yes (Death)
  Sender: FDA-Public Use
  Company Number: JP-ROCHE-1034832

PATIENT
  Sex: Female
  Weight: 51 kg

DRUGS (9)
  1. OXALIPLATIN [Concomitant]
     Indication: COLON CANCER METASTATIC
     Route: 041
     Dates: start: 20111013, end: 20111207
  2. FLUOROURACIL [Concomitant]
     Indication: COLON CANCER METASTATIC
     Route: 041
     Dates: start: 20111013, end: 20111201
  3. DECADRON [Concomitant]
     Route: 048
     Dates: start: 20111018, end: 20111114
  4. DECADRON [Concomitant]
     Route: 048
     Dates: start: 20111115, end: 20111128
  5. LOXONIN [Concomitant]
     Route: 048
     Dates: start: 20111009, end: 20120102
  6. LEVOLEUCOVORIN CALCIUM [Concomitant]
     Indication: COLON CANCER METASTATIC
     Route: 041
     Dates: start: 20111013, end: 20111207
  7. AVASTIN [Suspect]
     Indication: LARGE INTESTINE CARCINOMA
     Dosage: DOSAGE IS UNCERTAIN.
     Route: 041
     Dates: start: 20111013, end: 20111207
  8. DECADRON [Concomitant]
     Route: 041
     Dates: start: 20111013, end: 20111207
  9. SEROTONE [Concomitant]
     Route: 041
     Dates: start: 20111013, end: 20111207

REACTIONS (2)
  - COLON CANCER METASTATIC [None]
  - GASTROINTESTINAL PERFORATION [None]
